FAERS Safety Report 5515551-6 (Version None)
Quarter: 2007Q4

REPORT INFORMATION
  Report Type: 
  Country: None (occurrence: None)
  Receive Date: 20071113
  Receipt Date: 20070501
  Transmission Date: 20080405
  Serious: No
  Sender: FDA-Public Use
  Company Number: A0645246A

PATIENT
  Age: 60 Year
  Sex: Male

DRUGS (5)
  1. COREG [Suspect]
     Dosage: 12.5MG TWICE PER DAY
     Route: 048
  2. LISINOPRIL [Concomitant]
     Dosage: 40U UNKNOWN
     Route: 048
  3. DIGOXIN [Concomitant]
     Dosage: .125U UNKNOWN
     Route: 048
  4. WARFARIN SODIUM [Concomitant]
     Indication: ATRIAL FIBRILLATION
     Dosage: 7.5U UNKNOWN
     Route: 048
  5. AMIODARONE [Concomitant]
     Indication: ATRIAL FIBRILLATION
     Dosage: 100MG UNKNOWN
     Route: 048

REACTIONS (2)
  - ERECTILE DYSFUNCTION [None]
  - WEIGHT INCREASED [None]
